FAERS Safety Report 15851986 (Version 3)
Quarter: 2019Q1

REPORT INFORMATION
  Report Type: Spontaneous
  Country: GB (occurrence: GB)
  Receive Date: 20190122
  Receipt Date: 20190220
  Transmission Date: 20190417
  Serious: Yes (Life-Threatening, Hospitalization, Other)
  Sender: FDA-Public Use
  Company Number: GB-AUROBINDO-AUR-APL-2019-002304

PATIENT

DRUGS (1)
  1. PARACETAMOL [Suspect]
     Active Substance: ACETAMINOPHEN
     Indication: PRODUCT USED FOR UNKNOWN INDICATION
     Dosage: 16-62 GRAMS
     Route: 048

REACTIONS (7)
  - Hepatic artery thrombosis [Recovered/Resolved]
  - Transaminases increased [Recovered/Resolved]
  - Encephalopathy [Unknown]
  - Sepsis [Recovered/Resolved]
  - Acute hepatic failure [Recovered/Resolved]
  - Overdose [Recovering/Resolving]
  - Hepatic infarction [Recovered/Resolved]
